FAERS Safety Report 15996828 (Version 1)
Quarter: 2019Q1

REPORT INFORMATION
  Report Type: Spontaneous
  Country: US (occurrence: US)
  Receive Date: 20190222
  Receipt Date: 20190222
  Transmission Date: 20190418
  Serious: Yes (Death)
  Sender: FDA-Public Use
  Company Number: None

PATIENT
  Sex: Male

DRUGS (2)
  1. ASPIRIN. [Concomitant]
     Active Substance: ASPIRIN
  2. PREDNISONE. [Suspect]
     Active Substance: PREDNISONE
     Dosage: ?          OTHER FREQUENCY:TK 1 T PO D;?
     Route: 048
     Dates: start: 20151102

REACTIONS (1)
  - Death [None]
